FAERS Safety Report 24439082 (Version 3)
Quarter: 2024Q4

REPORT INFORMATION
  Report Type: Report from Study
  Country: BR (occurrence: BR)
  Receive Date: 20241015
  Receipt Date: 20241202
  Transmission Date: 20250115
  Serious: Yes (Death, Hospitalization, Other)
  Sender: BAYER HEALTHCARE PHARMACEUTICALS INC.
  Company Number: BR-BAYER-2024A146542

PATIENT
  Age: 62 Year
  Sex: Female

DRUGS (1)
  1. RIOCIGUAT [Suspect]
     Active Substance: RIOCIGUAT
     Indication: Pulmonary arterial hypertension
     Dosage: 2.5 (UNIT WAS NOT PROVIDED)
     Route: 048
     Dates: start: 2012, end: 202410

REACTIONS (11)
  - Death [Fatal]
  - Diverticulitis [None]
  - Melaena [Recovering/Resolving]
  - Melaena [None]
  - Haemoglobin decreased [Not Recovered/Not Resolved]
  - Melaena [None]
  - Therapeutic embolisation [None]
  - Intestinal ischaemia [None]
  - Post procedural haemorrhage [None]
  - Multiple organ dysfunction syndrome [None]
  - Acidosis [None]

NARRATIVE: CASE EVENT DATE: 20240101
